FAERS Safety Report 13679774 (Version 1)
Quarter: 2017Q2

REPORT INFORMATION
  Report Type: Spontaneous
  Country: CN (occurrence: CN)
  Receive Date: 20170622
  Receipt Date: 20170622
  Transmission Date: 20170830
  Serious: Yes (Life-Threatening)
  Sender: FDA-Public Use
  Company Number: CN-FRESENIUS KABI-FK201705217

PATIENT
  Age: 71 Year
  Sex: Male
  Weight: 60 kg

DRUGS (6)
  1. ETOMIDATE. [Suspect]
     Active Substance: ETOMIDATE
     Indication: SURGERY
  2. ATRACURIUM [Suspect]
     Active Substance: ATRACURIUM
     Indication: SURGERY
  3. DEXMEDETOMIDINE. [Suspect]
     Active Substance: DEXMEDETOMIDINE
     Indication: SURGERY
  4. FENTANYL. [Suspect]
     Active Substance: FENTANYL
     Indication: SURGERY
     Route: 042
  5. SODIUM CHLORIDE (MANUFACTURER UNKNOWN) [Suspect]
     Active Substance: SODIUM CHLORIDE
     Indication: PRODUCT USED FOR UNKNOWN INDICATION
     Route: 065
  6. HES 6% (MANUFACTURER UNKNOWN) [Suspect]
     Active Substance: HETASTARCH\SODIUM CHLORIDE
     Indication: HYPOVOLAEMIA
     Route: 065

REACTIONS (1)
  - Anaphylactic shock [Recovered/Resolved]
